FAERS Safety Report 10215220 (Version 1)
Quarter: 2014Q2

REPORT INFORMATION
  Report Type: Report from Study
  Country: BR (occurrence: BR)
  Receive Date: 20140603
  Receipt Date: 20140603
  Transmission Date: 20141212
  Serious: Yes (Hospitalization)
  Sender: FDA-Public Use
  Company Number: PHHY2014BR066118

PATIENT
  Sex: Male
  Weight: 98 kg

DRUGS (8)
  1. ONBREZ [Suspect]
     Indication: EMPHYSEMA
     Dosage: 300 UG, QD (ONCE A DAY)
     Route: 055
     Dates: start: 2013
  2. MIFLONIDE [Suspect]
     Indication: EMPHYSEMA
     Dosage: 400 UG, BID (TWICE A DAY)
     Dates: start: 2013
  3. CLOPIDOGREL [Concomitant]
     Indication: CARDIAC DISORDER
     Dosage: UNK UKN, UNK
  4. AAS [Concomitant]
     Indication: COAGULOPATHY
     Dosage: UNK UKN, UNK
  5. AMLODIPINE [Concomitant]
     Dosage: UNK UKN, UNK
  6. CARVEDILOL [Concomitant]
     Dosage: UNK UKN, UNK
  7. LOSARTAN [Concomitant]
     Dosage: UNK UKN, UNK
  8. ALDACTONE [Concomitant]
     Dosage: UNK UKN, UNK

REACTIONS (1)
  - Cardiomegaly [Recovering/Resolving]
